FAERS Safety Report 16584239 (Version 2)
Quarter: 2019Q3

REPORT INFORMATION
  Report Type: Spontaneous
  Country: FR (occurrence: FR)
  Receive Date: 20190717
  Receipt Date: 20190823
  Transmission Date: 20191004
  Serious: Yes (Life-Threatening)
  Sender: FDA-Public Use
  Company Number: FR-PFIZER INC-2019302312

PATIENT
  Age: 89 Year
  Sex: Female

DRUGS (2)
  1. FELDENE [Suspect]
     Active Substance: PIROXICAM
     Indication: SCIATICA
  2. FELDENE [Suspect]
     Active Substance: PIROXICAM
     Indication: INTERVERTEBRAL DISC PROTRUSION

REACTIONS (7)
  - Angina pectoris [Unknown]
  - Swelling [Unknown]
  - Fatigue [Unknown]
  - Off label use [Unknown]
  - Oedema [Unknown]
  - Choking [Unknown]
  - Product use in unapproved indication [Unknown]
